FAERS Safety Report 22028381 (Version 1)
Quarter: 2023Q1

REPORT INFORMATION
  Report Type: Spontaneous
  Country: US (occurrence: None)
  Receive Date: 20230223
  Receipt Date: 20230223
  Transmission Date: 20230418
  Serious: No
  Sender: FDA-Public Use
  Company Number: US-ROCHE-3129576

PATIENT
  Age: 15 Year
  Sex: Male
  Weight: 118.04 kg

DRUGS (4)
  1. NUTROPIN [Suspect]
     Active Substance: SOMATROPIN
     Indication: Growth hormone deficiency
     Dosage: FOR 6 DAYS A WEEK;
     Route: 058
     Dates: start: 202204, end: 202205
  2. NUTROPIN [Suspect]
     Active Substance: SOMATROPIN
  3. NUTROPIN [Suspect]
     Active Substance: SOMATROPIN
     Route: 058
     Dates: start: 2022
  4. NUTROPIN [Suspect]
     Active Substance: SOMATROPIN

REACTIONS (6)
  - Product complaint [Unknown]
  - Product complaint [Unknown]
  - Injection site pain [Unknown]
  - Product complaint [Unknown]
  - Incorrect dose administered [Unknown]
  - Insulin-like growth factor decreased [Unknown]

NARRATIVE: CASE EVENT DATE: 20220624
